FAERS Safety Report 21485110 (Version 3)
Quarter: 2023Q1

REPORT INFORMATION
  Report Type: Spontaneous
  Country: US (occurrence: US)
  Receive Date: 20221020
  Receipt Date: 20230124
  Transmission Date: 20230418
  Serious: No
  Sender: FDA-Public Use
  Company Number: US-NOVARTISTESTPH-NVSC2022US235020

PATIENT
  Sex: Female

DRUGS (1)
  1. COSENTYX [Suspect]
     Active Substance: SECUKINUMAB
     Indication: Product used for unknown indication
     Dosage: 300 MG
     Route: 065

REACTIONS (3)
  - Device malfunction [Unknown]
  - Device defective [Unknown]
  - Incorrect dose administered [Unknown]
